FAERS Safety Report 5599359-1 (Version None)
Quarter: 2008Q1

REPORT INFORMATION
  Report Type: 
  Country: None (occurrence: None)
  Receive Date: 20080122
  Receipt Date: 20080110
  Transmission Date: 20080703
  Serious: Yes (Disabling, Other)
  Sender: FDA-Public Use
  Company Number: US-PFIZER INC-2007098407

PATIENT
  Sex: Female
  Weight: 96.6 kg

DRUGS (8)
  1. LOPID [Suspect]
     Indication: BLOOD CHOLESTEROL INCREASED
     Route: 048
     Dates: start: 20070301, end: 20070101
  2. LOPID [Suspect]
     Indication: BLOOD TRIGLYCERIDES INCREASED
     Route: 048
     Dates: start: 20070101, end: 20070101
  3. FUROSEMIDE [Concomitant]
  4. VITAMIN CAP [Concomitant]
  5. CALCIUM WITH VITAMIN D [Concomitant]
  6. ASCORBIC ACID [Concomitant]
  7. VITAMIN E [Concomitant]
  8. GLUCOSAMINE [Concomitant]

REACTIONS (7)
  - ARTERIOSCLEROSIS [None]
  - CHOLELITHIASIS [None]
  - CYSTOCELE [None]
  - MUSCULOSKELETAL PAIN [None]
  - MYALGIA [None]
  - STOMACH DISCOMFORT [None]
  - SYNOVIAL CYST [None]
